FAERS Safety Report 9257986 (Version 1)
Quarter: 2013Q1

REPORT INFORMATION
  Report Type: Spontaneous
  Country: US (occurrence: None)
  Receive Date: 20121212
  Receipt Date: 20121212
  Transmission Date: 20140127
  Serious: No
  Sender: FDA-Public Use
  Company Number: 1208USA010832

PATIENT
  Sex: Male

DRUGS (8)
  1. VICTRELIS ( BOCEPREVIR) CAPSULE [Suspect]
     Route: 048
  2. PEGASYS ( PEGINTERFERON ALFA-2A) [Concomitant]
  3. RIBAVIRIN ( RIBAVIRIN) [Concomitant]
  4. PRILOSEC ( OMEPRAZOLE) [Concomitant]
  5. SPIRIVA ( TIOTROPIUM BROMIDE) [Concomitant]
  6. OMEGA-3 MARINE TRIGLYCERIDES ( OMEGA-3 MARINE TRIGLYCERIDES) [Concomitant]
  7. VITAMINS ( UNSPECIFIED) ( VITAMINS(UNSPECIFIED) [Concomitant]
  8. HYDROCHLOROTHIAZIDE TRIAMTERENE ( HYDROCHLOROTHIAZIDE TRIAMTERENE) [Concomitant]

REACTIONS (1)
  - White blood cell count decreased [None]
